FAERS Safety Report 5786053-7 (Version None)
Quarter: 2008Q2

REPORT INFORMATION
  Report Type: 
  Country: None (occurrence: None)
  Receive Date: 20080620
  Receipt Date: 20080620
  Transmission Date: 20081010
  Serious: Yes (Other)
  Sender: FDA-Public Use
  Company Number: None

PATIENT
  Sex: Male
  Weight: 81.1939 kg

DRUGS (1)
  1. OSMOPREP [Suspect]
     Indication: COLONOSCOPY
     Dosage: 32 TABLETS ONE DAY PO
     Route: 048
     Dates: start: 20080612, end: 20080612

REACTIONS (4)
  - DIARRHOEA [None]
  - FLUID RETENTION [None]
  - THERAPEUTIC RESPONSE INCREASED [None]
  - WEIGHT INCREASED [None]
